FAERS Safety Report 9269105 (Version 3)
Quarter: 2013Q2

REPORT INFORMATION
  Report Type: Spontaneous
  Country: US (occurrence: US)
  Receive Date: 20130503
  Receipt Date: 20130604
  Transmission Date: 20140414
  Serious: Yes (Other)
  Sender: FDA-Public Use
  Company Number: US-009507513-1304USA014303

PATIENT
  Sex: Male

DRUGS (5)
  1. REBETOL [Suspect]
     Indication: HEPATITIS C
     Dosage: UNK
     Dates: start: 20130421, end: 20130506
  2. PEGINTRON [Suspect]
     Indication: HEPATITIS C
     Dosage: 120 MICROGRAM,REDIPEN
     Dates: start: 20130421, end: 20130506
  3. TELAPREVIR [Suspect]
     Indication: HEPATITIS C
     Dosage: UNK
     Dates: start: 20130421, end: 20130506
  4. PEGASYS [Suspect]
     Indication: HEPATITIS C
     Dosage: 180 MICROGRAM, UNK
     Dates: start: 201301
  5. PEGASYS [Suspect]
     Dosage: 135 MICROGRAM, UNK
     Dates: end: 20130414

REACTIONS (16)
  - Anaemia [Unknown]
  - Bone pain [Unknown]
  - Oedema [Recovered/Resolved]
  - Facial asymmetry [Recovered/Resolved]
  - Eye disorder [Unknown]
  - Dysgeusia [Unknown]
  - Hypoaesthesia [Recovered/Resolved]
  - Anaemia [Unknown]
  - Vomiting [Unknown]
  - Tremor [Unknown]
  - Vomiting [Unknown]
  - Gait disturbance [Unknown]
  - Diarrhoea [Unknown]
  - Leukopenia [Unknown]
  - Haemoglobin decreased [Unknown]
  - White blood cell count decreased [Unknown]
